FAERS Safety Report 6707869-6 (Version None)
Quarter: 2010Q2

REPORT INFORMATION
  Report Type: 
  Country: None (occurrence: None)
  Receive Date: 20100503
  Receipt Date: 20090820
  Transmission Date: 20101027
  Serious: No
  Sender: FDA-Public Use
  Company Number: US-ASTRAZENECA-2009SE09241

PATIENT
  Age: 23 Year
  Sex: Female
  Weight: 104.3 kg

DRUGS (5)
  1. NEXIUM [Suspect]
     Indication: GASTROOESOPHAGEAL REFLUX DISEASE
     Route: 048
     Dates: end: 20090101
  2. ALPROLAZAM [Concomitant]
  3. CHLORDIAZEPOXIDE [Concomitant]
  4. CLIDINIUM [Concomitant]
  5. METOCLOPRAMIDE HYDROCHLORIDE [Concomitant]

REACTIONS (3)
  - DRUG DOSE OMISSION [None]
  - GASTROOESOPHAGEAL REFLUX DISEASE [None]
  - MOUTH ULCERATION [None]
